FAERS Safety Report 11581849 (Version 1)
Quarter: 2015Q3

REPORT INFORMATION
  Report Type: Spontaneous
  Country: US (occurrence: None)
  Receive Date: 20150930
  Receipt Date: 20150930
  Transmission Date: 20151125
  Serious: No
  Sender: FDA-Public Use
  Company Number: None

PATIENT
  Age: 67 Year
  Sex: Female

DRUGS (1)
  1. COPAXONE [Suspect]
     Active Substance: GLATIRAMER ACETATE
     Indication: MULTIPLE SCLEROSIS
     Route: 048
     Dates: start: 20140403, end: 20150915

REACTIONS (4)
  - Chills [None]
  - Dyspnoea [None]
  - Nausea [None]
  - Headache [None]

NARRATIVE: CASE EVENT DATE: 20150601
